FAERS Safety Report 8760229 (Version 1)
Quarter: 2012Q4

REPORT INFORMATION
  Report Type: Spontaneous
  Country: US (occurrence: None)
  Receive Date: 20120828
  Receipt Date: 20120828
  Transmission Date: 20130627
  Serious: No
  Sender: FDA-Public Use
  Company Number: None

PATIENT
  Age: 61 Year
  Sex: Female
  Weight: 118.84 kg

DRUGS (1)
  1. CLONIDINE HCL [Suspect]
     Indication: BLOOD PRESSURE HIGH
     Dosage: 2 tab 2x^s per day
     Dates: start: 2010, end: 2012

REACTIONS (6)
  - Oedema [None]
  - Constipation [None]
  - Dry mouth [None]
  - Breath odour [None]
  - Fatigue [None]
  - Sleep disorder [None]
